FAERS Safety Report 25329354 (Version 1)
Quarter: 2025Q2

REPORT INFORMATION
  Report Type: Spontaneous
  Country: US (occurrence: US)
  Receive Date: 20250519
  Receipt Date: 20250519
  Transmission Date: 20250717
  Serious: Yes (Other)
  Sender: COOPERSURGICAL
  Company Number: US-COOPERSURGICAL, INC.-2025CPS003860

PATIENT
  Age: 34 Year
  Sex: Female
  Weight: 108.84 kg

DRUGS (6)
  1. PARAGARD T 380A [Suspect]
     Active Substance: COPPER
     Route: 015
     Dates: start: 20080516, end: 20180314
  2. ALBUTEROL SULFATE [Concomitant]
     Active Substance: ALBUTEROL SULFATE
     Dates: start: 201101
  3. FLUTICASONE [Concomitant]
     Active Substance: FLUTICASONE
     Dates: start: 201101
  4. SUMATRIPTAN [Concomitant]
     Active Substance: SUMATRIPTAN
     Dates: start: 201101
  5. FLUOXETINE HYDROCHLORIDE [Concomitant]
     Active Substance: FLUOXETINE HYDROCHLORIDE
     Dates: start: 201101, end: 201806
  6. OMEPRAZOLE [Concomitant]
     Active Substance: OMEPRAZOLE
     Dates: start: 201101

REACTIONS (11)
  - Reproductive complication associated with device [Not Recovered/Not Resolved]
  - Salpingo-oophorectomy unilateral [Unknown]
  - Hysterectomy [Not Recovered/Not Resolved]
  - Salpingectomy [Unknown]
  - Device breakage [Recovered/Resolved]
  - Foreign body in reproductive tract [Recovered/Resolved]
  - Complication of device removal [Recovered/Resolved]
  - Emotional disorder [Unknown]
  - Unevaluable event [Not Recovered/Not Resolved]
  - Pelvic pain [Recovered/Resolved]
  - Pain [Unknown]

NARRATIVE: CASE EVENT DATE: 20171121
